FAERS Safety Report 11051037 (Version 1)
Quarter: 2015Q2

REPORT INFORMATION
  Report Type: Spontaneous
  Country: FR (occurrence: FR)
  Receive Date: 20150421
  Receipt Date: 20150421
  Transmission Date: 20150821
  Serious: Yes (Other)
  Sender: FDA-Public Use
  Company Number: FR-ABBVIE-15P-056-1375193-00

PATIENT
  Age: 45 Year
  Sex: Female
  Weight: 100 kg

DRUGS (5)
  1. MIANSERINE [Concomitant]
     Active Substance: MIANSERIN HYDROCHLORIDE
     Indication: BIPOLAR DISORDER
     Route: 065
  2. LORAZEPAM. [Concomitant]
     Active Substance: LORAZEPAM
     Indication: BIPOLAR DISORDER
     Route: 065
  3. LOXAPAC [Interacting]
     Active Substance: LOXAPINE SUCCINATE
     Indication: AGITATION
     Route: 065
  4. LITHIUM. [Concomitant]
     Active Substance: LITHIUM
     Indication: BIPOLAR DISORDER
     Route: 065
  5. SODIUM VALPROATE [Suspect]
     Active Substance: VALPROATE SODIUM
     Indication: BIPOLAR DISORDER
     Route: 065

REACTIONS (3)
  - Drug interaction [Unknown]
  - Neuroleptic malignant syndrome [Unknown]
  - Drug level increased [Unknown]
